FAERS Safety Report 8390675-7 (Version None)
Quarter: 2012Q2

REPORT INFORMATION
  Report Type: 
  Country: None (occurrence: None)
  Receive Date: 20120529
  Receipt Date: 20120518
  Transmission Date: 20120825
  Serious: Yes (Hospitalization)
  Sender: FDA-Public Use
  Company Number: US-BRISTOL-MYERS SQUIBB COMPANY-16341968

PATIENT
  Age: 63 Year
  Sex: Male

DRUGS (4)
  1. OMEPRAZOLE [Suspect]
  2. KOMBIGLYZE XR [Suspect]
     Dosage: KOMBIGLYZE XR 5/500
  3. ALTACE [Concomitant]
  4. METFORMIN HCL [Suspect]

REACTIONS (2)
  - VITAMIN B12 DEFICIENCY [None]
  - PANCYTOPENIA [None]
